FAERS Safety Report 4461122-2 (Version None)
Quarter: 2004Q3

REPORT INFORMATION
  Report Type: 
  Country: None (occurrence: None)
  Receive Date: 20040923
  Receipt Date: 20040908
  Transmission Date: 20050211
  Serious: Yes (Other)
  Sender: FDA-Public Use
  Company Number: US-2004-028895

PATIENT
  Age: 55 Year
  Sex: Female

DRUGS (2)
  1. CLIMARA [Suspect]
     Indication: HORMONE REPLACEMENT THERAPY
     Dosage: SEE IMAGE
     Route: 062
     Dates: start: 19950101, end: 20000701
  2. CLIMARA [Suspect]
     Indication: HORMONE REPLACEMENT THERAPY
     Dosage: SEE IMAGE
     Route: 062
     Dates: start: 20031201

REACTIONS (2)
  - BONE MARROW TRANSPLANT [None]
  - SMALL INTESTINE TRANSPLANT [None]
